FAERS Safety Report 9669653 (Version 2)
Quarter: 2013Q4

REPORT INFORMATION
  Report Type: Report from Study
  Country: KR (occurrence: KR)
  Receive Date: 20131105
  Receipt Date: 20131119
  Transmission Date: 20140711
  Serious: Yes (Death, Other)
  Sender: FDA-Public Use
  Company Number: KR-PFIZER INC-2013312418

PATIENT
  Age: 2 Year
  Sex: Female

DRUGS (7)
  1. VINCRISTINE SULFATE [Suspect]
     Indication: BRAIN NEOPLASM
     Dosage: 2 MG/M2, DAY 0
  2. CISPLATIN [Suspect]
     Indication: BRAIN NEOPLASM
     Dosage: 60 MG/M2, DAY 0
  3. IRINOTECAN HCL [Suspect]
     Indication: BRAIN NEOPLASM
     Dosage: 300 MG/M2, DAY 0
  4. ETOPOSIDE [Suspect]
     Indication: BRAIN NEOPLASM
     Dosage: 100 MG/M2/DAY, DAY 0-2
  5. CYCLOPHOSPHAMIDE [Suspect]
     Indication: BRAIN NEOPLASM
     Dosage: 1000 MG/M2, DAY 1
  6. ATROPINE [Concomitant]
     Indication: PROPHYLAXIS AGAINST DIARRHOEA
     Dosage: UNK
  7. ATROPINE [Concomitant]
     Indication: MUSCLE SPASMS

REACTIONS (4)
  - Second primary malignancy [Fatal]
  - Acute myeloid leukaemia [Fatal]
  - Neutropenia [Unknown]
  - Thrombocytopenia [Unknown]
